FAERS Safety Report 12411425 (Version 1)
Quarter: 2016Q2

REPORT INFORMATION
  Report Type: Spontaneous
  Country: US (occurrence: US)
  Receive Date: 20160527
  Receipt Date: 20160527
  Transmission Date: 20160815
  Serious: Yes (Other)
  Sender: FDA-Public Use
  Company Number: US-BAXTER-2016BAX027052

PATIENT
  Sex: Female
  Weight: 79.2 kg

DRUGS (22)
  1. DEXAMETHASONE. [Suspect]
     Active Substance: DEXAMETHASONE
     Indication: ACUTE LYMPHOCYTIC LEUKAEMIA
     Dosage: HYPER-CVAD
     Route: 065
  2. METHOTREXATE [Suspect]
     Active Substance: METHOTREXATE
     Dosage: POMP PROTOCOL
     Route: 065
  3. PREDNISONE. [Suspect]
     Active Substance: PREDNISONE
     Indication: PROPHYLAXIS
     Dosage: POMP THERAPY
     Route: 065
     Dates: start: 201005, end: 201012
  4. CYCLOPHOSPHAMIDE FOR INJECTION, USP [Suspect]
     Active Substance: CYCLOPHOSPHAMIDE
     Indication: ACUTE LYMPHOCYTIC LEUKAEMIA
     Route: 065
  5. VINCRISTINE [Suspect]
     Active Substance: VINCRISTINE
     Indication: PROPHYLAXIS
     Dosage: POMP PTOTOCOL
     Route: 065
     Dates: start: 201005, end: 201012
  6. DOXORUBICIN [Suspect]
     Active Substance: DOXORUBICIN
     Indication: ACUTE LYMPHOCYTIC LEUKAEMIA
     Dosage: HYPER-CVAD PROTOCOL
     Route: 065
  7. BLINATUMOMAB [Suspect]
     Active Substance: BLINATUMOMAB
     Route: 065
     Dates: start: 201510, end: 20151123
  8. MELPHALAN [Suspect]
     Active Substance: MELPHALAN
     Indication: BONE MARROW CONDITIONING REGIMEN
     Route: 065
  9. INOTUZUMAB [Suspect]
     Active Substance: INOTUZUMAB OZOGAMICIN
     Indication: ACUTE LYMPHOCYTIC LEUKAEMIA
     Route: 065
  10. ALOXI [Concomitant]
     Active Substance: PALONOSETRON HYDROCHLORIDE
     Indication: PRODUCT USED FOR UNKNOWN INDICATION
     Route: 065
  11. VINCRISTINE [Suspect]
     Active Substance: VINCRISTINE
     Indication: ACUTE LYMPHOCYTIC LEUKAEMIA
     Dosage: HYPER-CVAD PTOTOCOL
     Route: 065
  12. 6-MERCAPTOPURINE [Suspect]
     Active Substance: MERCAPTOPURINE
     Dosage: POMP PROTOCOL
     Route: 065
  13. PREDNISONE. [Suspect]
     Active Substance: PREDNISONE
     Dosage: POMP THERAPY
     Route: 065
  14. FLUDARABINE [Suspect]
     Active Substance: FLUDARABINE PHOSPHATE
     Indication: BONE MARROW CONDITIONING REGIMEN
     Route: 065
  15. VINCRISTINE [Suspect]
     Active Substance: VINCRISTINE
     Dosage: POMP PTOTOCOL
     Route: 065
  16. BLINATUMOMAB [Suspect]
     Active Substance: BLINATUMOMAB
     Indication: ACUTE LYMPHOCYTIC LEUKAEMIA
     Dosage: STOPPED AFTER DAY 10
     Route: 065
     Dates: start: 201508
  17. BLINATUMOMAB [Suspect]
     Active Substance: BLINATUMOMAB
     Dosage: COMPLETED 2 CYCLES
     Route: 065
     Dates: end: 201601
  18. CYTARABINE. [Suspect]
     Active Substance: CYTARABINE
     Indication: ACUTE LYMPHOCYTIC LEUKAEMIA
     Dosage: HYPER-CVAD
     Route: 065
  19. 6-MERCAPTOPURINE [Suspect]
     Active Substance: MERCAPTOPURINE
     Indication: PROPHYLAXIS
     Dosage: POMP PROTOCOL
     Route: 065
     Dates: start: 201005, end: 201012
  20. METHOTREXATE [Suspect]
     Active Substance: METHOTREXATE
     Indication: ACUTE LYMPHOCYTIC LEUKAEMIA
     Dosage: HYPER-CVAD PROTOCOL
     Route: 065
  21. METHOTREXATE [Suspect]
     Active Substance: METHOTREXATE
     Indication: PROPHYLAXIS
     Dosage: POMP PROTOCOL
     Route: 065
     Dates: start: 201005, end: 201012
  22. BLINATUMOMAB [Suspect]
     Active Substance: BLINATUMOMAB
     Route: 065
     Dates: start: 20160225

REACTIONS (17)
  - Pancytopenia [Unknown]
  - Upper respiratory tract infection [Unknown]
  - Acute lymphocytic leukaemia recurrent [Not Recovered/Not Resolved]
  - Arthralgia [Unknown]
  - Radiation alopecia [Unknown]
  - Mucosal dryness [Unknown]
  - Neck pain [Unknown]
  - Nausea [Unknown]
  - Tachycardia [Unknown]
  - Acute lymphocytic leukaemia recurrent [Not Recovered/Not Resolved]
  - Arthralgia [Unknown]
  - Graft versus host disease in skin [Unknown]
  - Facial paralysis [Unknown]
  - Klebsiella sepsis [Unknown]
  - Muscular weakness [Unknown]
  - Oedema peripheral [Unknown]
  - Liver function test increased [Unknown]

NARRATIVE: CASE EVENT DATE: 201404
